FAERS Safety Report 5107546-1 (Version None)
Quarter: 2006Q3

REPORT INFORMATION
  Report Type: 
  Country: None (occurrence: None)
  Receive Date: 20060913
  Receipt Date: 20060913
  Transmission Date: 20061208
  Serious: No
  Sender: FDA-Public Use
  Company Number: None

PATIENT
  Sex: Male

DRUGS (1)
  1. CLOPIDOGREL [Suspect]
     Indication: VASCULAR BYPASS GRAFT
     Dosage: 75 MG ONCE DAILY PO
     Route: 048
     Dates: start: 20060906, end: 20060912

REACTIONS (1)
  - DIZZINESS [None]
